FAERS Safety Report 10523031 (Version 3)
Quarter: 2014Q4

REPORT INFORMATION
  Report Type: Report from Study
  Country: CA (occurrence: CA)
  Receive Date: 20141016
  Receipt Date: 20141106
  Transmission Date: 20150528
  Serious: Yes (Hospitalization, Other)
  Sender: FDA-Public Use
  Company Number: CA-ABBVIE-14K-028-1294962-00

PATIENT
  Age: 52 Year
  Sex: Female
  Weight: 72.19 kg

DRUGS (9)
  1. HUMIRA [Suspect]
     Active Substance: ADALIMUMAB
     Route: 058
     Dates: start: 20141017
  2. INSULIN [Concomitant]
     Active Substance: INSULIN NOS
     Indication: DIABETES MELLITUS
     Route: 058
  3. METHOTREXATE [Concomitant]
     Active Substance: METHOTREXATE
     Indication: RHEUMATOID ARTHRITIS
     Route: 058
  4. HUMIRA [Suspect]
     Active Substance: ADALIMUMAB
     Indication: RHEUMATOID ARTHRITIS
     Route: 058
     Dates: start: 20140131, end: 20140926
  5. METHOTREXATE [Concomitant]
     Active Substance: METHOTREXATE
     Indication: SARCOIDOSIS
  6. PREDNISONE. [Concomitant]
     Active Substance: PREDNISONE
     Indication: RHEUMATOID ARTHRITIS
     Route: 048
  7. PREDNISONE. [Concomitant]
     Active Substance: PREDNISONE
     Indication: SARCOIDOSIS
  8. PLAQUENIL [Concomitant]
     Active Substance: HYDROXYCHLOROQUINE SULFATE
     Indication: RHEUMATOID ARTHRITIS
     Route: 048
  9. PLAQUENIL [Concomitant]
     Active Substance: HYDROXYCHLOROQUINE SULFATE
     Indication: SARCOIDOSIS

REACTIONS (19)
  - Peritonitis [Not Recovered/Not Resolved]
  - Unevaluable event [Recovering/Resolving]
  - Postoperative wound infection [Recovered/Resolved]
  - Cough [Recovering/Resolving]
  - Abdominal distension [Not Recovered/Not Resolved]
  - Incision site infection [Recovered/Resolved]
  - Chills [Not Recovered/Not Resolved]
  - Pyrexia [Not Recovered/Not Resolved]
  - Pain [Unknown]
  - Unevaluable event [Unknown]
  - Chills [Not Recovered/Not Resolved]
  - Seroma [Not Recovered/Not Resolved]
  - Hernia [Unknown]
  - Post procedural discharge [Recovering/Resolving]
  - Incision site complication [Not Recovered/Not Resolved]
  - Lower respiratory tract infection [Unknown]
  - Contusion [Not Recovered/Not Resolved]
  - Umbilical erythema [Not Recovered/Not Resolved]
  - Lower respiratory tract infection [Not Recovered/Not Resolved]

NARRATIVE: CASE EVENT DATE: 2014
